FAERS Safety Report 4974748-4 (Version None)
Quarter: 2006Q2

REPORT INFORMATION
  Report Type: 
  Country: None (occurrence: None)
  Receive Date: 20060410
  Receipt Date: 20060330
  Transmission Date: 20061013
  Serious: Yes (Hospitalization, Other)
  Sender: FDA-Public Use
  Company Number: 2006-03-0416

PATIENT
  Age: 76 Year
  Sex: Female
  Weight: 75 kg

DRUGS (6)
  1. NASONEX [Suspect]
     Indication: RHINITIS
     Dosage: NASAL SPRAY
     Dates: start: 20060204, end: 20060211
  2. PLAVIX [Concomitant]
  3. CORDIPATCH (GLYCERYL TRINITRATE) [Concomitant]
  4. MONO-TILDIEM (DILTIAZEM) [Concomitant]
  5. BISOPROLOL FUMARATE [Concomitant]
  6. VASTAREL [Concomitant]

REACTIONS (4)
  - BRADYCARDIA [None]
  - DYSPNOEA [None]
  - HYPERTENSIVE CRISIS [None]
  - MYOCARDIAL INFARCTION [None]
